FAERS Safety Report 17720259 (Version 1)
Quarter: 2020Q2

REPORT INFORMATION
  Report Type: Spontaneous
  Country: US (occurrence: US)
  Receive Date: 20200428
  Receipt Date: 20200428
  Transmission Date: 20200714
  Serious: No
  Sender: FDA-Public Use
  Company Number: US-BAUSCH-BL-2020-011996

PATIENT
  Age: 79 Year
  Sex: Female

DRUGS (2)
  1. ALAWAY [Suspect]
     Active Substance: KETOTIFEN FUMARATE
     Indication: LACRIMATION INCREASED
     Route: 047
     Dates: start: 202004, end: 202004
  2. ALAWAY [Suspect]
     Active Substance: KETOTIFEN FUMARATE
     Indication: EYE ALLERGY

REACTIONS (1)
  - Eye irritation [Recovered/Resolved]

NARRATIVE: CASE EVENT DATE: 202004
